FAERS Safety Report 6899341-8 (Version None)
Quarter: 2010Q3

REPORT INFORMATION
  Report Type: 
  Country: None (occurrence: None)
  Receive Date: 20100802
  Receipt Date: 20090401
  Transmission Date: 20110219
  Serious: No
  Sender: FDA-Public Use
  Company Number: US-PFIZER INC-2009168222

PATIENT
  Sex: Male
  Weight: 102.05 kg

DRUGS (1)
  1. CAVERJECT [Suspect]
     Indication: ERECTILE DYSFUNCTION
     Dosage: 20 UG, UNK
     Dates: start: 20080101

REACTIONS (1)
  - ERECTILE DYSFUNCTION [None]
